FAERS Safety Report 7651604-4 (Version None)
Quarter: 2011Q3

REPORT INFORMATION
  Report Type: 
  Country: None (occurrence: None)
  Receive Date: 20110802
  Receipt Date: 20110722
  Transmission Date: 20111222
  Serious: Yes (Death, Hospitalization)
  Sender: FDA-Public Use
  Company Number: US-ASTRAZENECA-2011SE32461

PATIENT
  Age: 61 Year
  Sex: Male
  Weight: 64.9 kg

DRUGS (9)
  1. SPIRIVA [Concomitant]
     Indication: CHRONIC OBSTRUCTIVE PULMONARY DISEASE
     Route: 055
     Dates: start: 20060530, end: 20110428
  2. ALBUTEROL SULFATE AUTOHALER [Concomitant]
     Indication: CHRONIC OBSTRUCTIVE PULMONARY DISEASE
     Dosage: 108 UG, VARIABLE FREQUENCY
     Route: 055
     Dates: start: 20020104, end: 20110428
  3. SPIRIVA [Concomitant]
  4. LIPITOR [Concomitant]
  5. SYMBICORT [Suspect]
     Indication: CHRONIC OBSTRUCTIVE PULMONARY DISEASE
     Dosage: 160/4.5 1PUFF BID
     Route: 055
     Dates: start: 20090319, end: 20110428
  6. TOPROL-XL [Suspect]
     Route: 048
  7. VENTOLIN HFA [Concomitant]
     Dosage: AS NEEDED
  8. ALBUTEROL SULFATE AUTOHALER [Concomitant]
  9. NORVASC [Concomitant]

REACTIONS (5)
  - CHRONIC OBSTRUCTIVE PULMONARY DISEASE [None]
  - HYPERTENSION [None]
  - POLYCYTHAEMIA [None]
  - RESPIRATORY FAILURE [None]
  - EMPHYSEMA [None]
